FAERS Safety Report 21880321 (Version 1)
Quarter: 2023Q1

REPORT INFORMATION
  Report Type: Report from Study
  Country: FR (occurrence: FR)
  Receive Date: 20230118
  Receipt Date: 20230118
  Transmission Date: 20230418
  Serious: Yes (Other)
  Sender: FDA-Public Use
  Company Number: FR-GILEAD-2021-0563291

PATIENT
  Sex: Female
  Weight: 60 kg

DRUGS (12)
  1. SACITUZUMAB GOVITECAN-HZIY [Suspect]
     Active Substance: SACITUZUMAB GOVITECAN-HZIY
     Indication: Triple negative breast cancer
     Dosage: 10 MG/KG, CYCLE 1 D1, D8
     Route: 042
     Dates: start: 20211216, end: 20211230
  2. SACITUZUMAB GOVITECAN-HZIY [Suspect]
     Active Substance: SACITUZUMAB GOVITECAN-HZIY
     Dosage: 10 MG/KG D1 19-JAN-2022, D8 26-JAN-2022
     Route: 042
     Dates: start: 20220119, end: 20220126
  3. SACITUZUMAB GOVITECAN-HZIY [Suspect]
     Active Substance: SACITUZUMAB GOVITECAN-HZIY
     Dosage: 10 MG/KG D1 09-FEB-2022, D8 16-FEB-2022
     Route: 042
     Dates: start: 20220209, end: 20220216
  4. SACITUZUMAB GOVITECAN-HZIY [Suspect]
     Active Substance: SACITUZUMAB GOVITECAN-HZIY
     Dosage: 10 MG/KG CYCLE 4 DAYS 1 AND 8
     Route: 042
     Dates: start: 20220303, end: 20220309
  5. SACITUZUMAB GOVITECAN-HZIY [Suspect]
     Active Substance: SACITUZUMAB GOVITECAN-HZIY
     Dosage: 10 MG/KG CYCLE 5 DAYS 1 AND 8
     Route: 042
     Dates: start: 20220323, end: 20220330
  6. SACITUZUMAB GOVITECAN-HZIY [Suspect]
     Active Substance: SACITUZUMAB GOVITECAN-HZIY
     Dosage: 10 MG/KG CYCLE 6 DAYS 1 AND 8
     Route: 042
     Dates: start: 20220413, end: 20220420
  7. SACITUZUMAB GOVITECAN-HZIY [Suspect]
     Active Substance: SACITUZUMAB GOVITECAN-HZIY
     Dosage: 10 MG/KG CYCLE 7 DAYS 1 AND 8
     Route: 042
     Dates: start: 20220504, end: 20220511
  8. SACITUZUMAB GOVITECAN-HZIY [Suspect]
     Active Substance: SACITUZUMAB GOVITECAN-HZIY
     Dosage: 10 MG/KG CYCLE 8 DAYS 1 AND 8
     Route: 042
     Dates: start: 20220608, end: 20220615
  9. SACITUZUMAB GOVITECAN-HZIY [Suspect]
     Active Substance: SACITUZUMAB GOVITECAN-HZIY
     Dosage: 10 MG/KG CYCLE 9 DAYS 1 AND 8
     Route: 042
     Dates: start: 20220706, end: 20220713
  10. SACITUZUMAB GOVITECAN-HZIY [Suspect]
     Active Substance: SACITUZUMAB GOVITECAN-HZIY
     Dosage: 10 MG/KG CYCLE 10 DAYS 1 AND 8
     Route: 042
     Dates: start: 20220727, end: 20220810
  11. SACITUZUMAB GOVITECAN-HZIY [Suspect]
     Active Substance: SACITUZUMAB GOVITECAN-HZIY
     Dosage: 10 MG/KG, C11 D1
     Route: 042
     Dates: start: 20220824, end: 20220824
  12. TAXOL [Concomitant]
     Active Substance: PACLITAXEL
     Indication: Triple negative breast cancer

REACTIONS (13)
  - Leukopenia [Recovered/Resolved]
  - Thrombocytopenia [Not Recovered/Not Resolved]
  - Leukopenia [Recovered/Resolved]
  - Leukopenia [Recovered/Resolved]
  - Disease progression [Unknown]
  - Ascites [Unknown]
  - Anaemia [Recovering/Resolving]
  - Off label use [Recovered/Resolved]
  - Inappropriate schedule of product administration [Unknown]
  - Inappropriate schedule of product administration [Unknown]
  - Neutropenia [Recovered/Resolved]
  - Off label use [Recovered/Resolved]
  - Asthenia [Unknown]

NARRATIVE: CASE EVENT DATE: 20211230
